FAERS Safety Report 6992108-1 (Version None)
Quarter: 2010Q3

REPORT INFORMATION
  Report Type: 
  Country: None (occurrence: None)
  Receive Date: 20100917
  Receipt Date: 20100915
  Transmission Date: 20110219
  Serious: Yes (Death, Hospitalization, Other)
  Sender: FDA-Public Use
  Company Number: US-ASTRAZENECA-2008UW28437

PATIENT
  Age: 10 Year
  Sex: Male
  Weight: 49.9 kg

DRUGS (14)
  1. SEROQUEL [Suspect]
     Indication: BIPOLAR DISORDER
     Route: 048
     Dates: start: 20050101
  2. SEROQUEL [Suspect]
     Indication: ATTENTION DEFICIT/HYPERACTIVITY DISORDER
     Route: 048
     Dates: start: 20050101
  3. SEROQUEL [Suspect]
     Indication: OPPOSITIONAL DEFIANT DISORDER
     Route: 048
     Dates: start: 20050101
  4. SEROQUEL [Suspect]
     Route: 048
     Dates: start: 20060524, end: 20070611
  5. SEROQUEL [Suspect]
     Route: 048
     Dates: start: 20060524, end: 20070611
  6. SEROQUEL [Suspect]
     Route: 048
     Dates: start: 20060524, end: 20070611
  7. RISPERDAL [Concomitant]
     Indication: ATTENTION DEFICIT/HYPERACTIVITY DISORDER
     Dosage: 0.25MG - 1MG
     Dates: start: 20060929
  8. RISPERDAL [Concomitant]
     Indication: OPPOSITIONAL DEFIANT DISORDER
     Dosage: 0.25MG - 1MG
     Dates: start: 20060929
  9. ADDERALL 10 [Concomitant]
     Indication: ATTENTION DEFICIT/HYPERACTIVITY DISORDER
     Dates: start: 20060101, end: 20070101
  10. ADDERALL 10 [Concomitant]
     Indication: OPPOSITIONAL DEFIANT DISORDER
     Dates: start: 20060101, end: 20070101
  11. CONCERTA/METADATE CD [Concomitant]
     Indication: ATTENTION DEFICIT/HYPERACTIVITY DISORDER
     Dosage: 20-36 MG
     Dates: start: 20030101
  12. CONCERTA/METADATE CD [Concomitant]
     Indication: OPPOSITIONAL DEFIANT DISORDER
     Dosage: 20-36 MG
     Dates: start: 20030101
  13. CLONIDINE [Concomitant]
     Indication: ATTENTION DEFICIT/HYPERACTIVITY DISORDER
     Dates: start: 20060101, end: 20070101
  14. CLONIDINE [Concomitant]
     Indication: OPPOSITIONAL DEFIANT DISORDER
     Dates: start: 20060101, end: 20070101

REACTIONS (5)
  - CONVULSION [None]
  - DEATH [None]
  - DIABETES MELLITUS [None]
  - HYPERGLYCAEMIA [None]
  - KETONURIA [None]
